FAERS Safety Report 15587785 (Version 1)
Quarter: 2018Q4

REPORT INFORMATION
  Report Type: Spontaneous
  Country: AU (occurrence: AU)
  Receive Date: 20181105
  Receipt Date: 20181105
  Transmission Date: 20190205
  Serious: Yes (Other)
  Sender: FDA-Public Use
  Company Number: AU-BAYER-RCH-69853

PATIENT
  Age: 75 Year
  Sex: Male

DRUGS (6)
  1. FELDENE [Suspect]
     Active Substance: PIROXICAM
     Indication: LEFT VENTRICULAR FAILURE
     Route: 065
     Dates: end: 19910204
  2. ASPIRIN. [Suspect]
     Active Substance: ASPIRIN
     Indication: PRODUCT USED FOR UNKNOWN INDICATION
     Route: 065
     Dates: start: 19910202, end: 19910208
  3. ENALAPRIL [ENALAPRIL] [Suspect]
     Active Substance: ENALAPRIL
     Indication: PRODUCT USED FOR UNKNOWN INDICATION
     Route: 065
     Dates: start: 19910126, end: 19910204
  4. DIAZEPAM. [Suspect]
     Active Substance: DIAZEPAM
     Indication: PRODUCT USED FOR UNKNOWN INDICATION
     Route: 065
     Dates: end: 19910203
  5. DI-GESIC [Suspect]
     Active Substance: ACETAMINOPHEN\PROPOXYPHENE HYDROCHLORIDE
     Indication: PRODUCT USED FOR UNKNOWN INDICATION
     Dosage: 8 DF (DAILY DOSE), , UNKNOWN
     Route: 065
     Dates: start: 19910205, end: 19910209
  6. PARACETAMOL + CODEINE PHOSPHATE [Suspect]
     Active Substance: ACETAMINOPHEN\CODEINE PHOSPHATE
     Indication: PRODUCT USED FOR UNKNOWN INDICATION
     Dosage: 8 DF (DAILY DOSE), , UNKNOWN
     Route: 065
     Dates: end: 19910203

REACTIONS (1)
  - Gastric ulcer haemorrhage [Unknown]

NARRATIVE: CASE EVENT DATE: 19910209
